FAERS Safety Report 23348971 (Version 4)
Quarter: 2024Q1

REPORT INFORMATION
  Report Type: Spontaneous
  Country: US (occurrence: US)
  Receive Date: 20231229
  Receipt Date: 20240321
  Transmission Date: 20240410
  Serious: Yes (Other)
  Sender: FDA-Public Use
  Company Number: US-JNJFOC-20231265288

PATIENT
  Sex: Male

DRUGS (15)
  1. HALOPERIDOL [Suspect]
     Active Substance: HALOPERIDOL
     Indication: Mental disorder
     Dosage: EITHER 6 OR 7 MG; STARTED IN 1970^S; HASN^T TAKEN THE DRUG SINCE 1990
     Route: 065
  2. HALOPERIDOL [Suspect]
     Active Substance: HALOPERIDOL
     Indication: Schizophrenia
  3. HALOPERIDOL [Suspect]
     Active Substance: HALOPERIDOL
     Indication: Bipolar disorder
  4. HALOPERIDOL [Suspect]
     Active Substance: HALOPERIDOL
     Indication: Attention deficit hyperactivity disorder
  5. HALOPERIDOL [Suspect]
     Active Substance: HALOPERIDOL
     Indication: Schizophrenia
  6. HALDOL DECANOATE [Suspect]
     Active Substance: HALOPERIDOL DECANOATE
     Indication: Mental disorder
     Dosage: FROM AN UNSPECIFIED DATE IN 1970S AND 1980S; HASN^T TAKEN THE DRUG SINCE 1990
     Route: 030
  7. HALDOL DECANOATE [Suspect]
     Active Substance: HALOPERIDOL DECANOATE
     Indication: Schizophrenia
  8. HALDOL DECANOATE [Suspect]
     Active Substance: HALOPERIDOL DECANOATE
     Indication: Bipolar disorder
  9. HALDOL DECANOATE [Suspect]
     Active Substance: HALOPERIDOL DECANOATE
     Indication: Attention deficit hyperactivity disorder
  10. HALDOL DECANOATE [Suspect]
     Active Substance: HALOPERIDOL DECANOATE
     Indication: Schizophrenia
  11. RISPERDAL [Suspect]
     Active Substance: RISPERIDONE
     Indication: Product used for unknown indication
     Route: 048
  12. RISPERDAL [Suspect]
     Active Substance: RISPERIDONE
     Route: 048
  13. HALOPERIDOL [Suspect]
     Active Substance: HALOPERIDOL
     Indication: Product used for unknown indication
     Dosage: FROM AN UNSPECIFIED DATE IN 1970S AND 1980S
     Route: 065
  14. LITHIUM [Concomitant]
     Active Substance: LITHIUM
     Indication: Product used for unknown indication
     Route: 065
  15. RITALIN [Concomitant]
     Active Substance: METHYLPHENIDATE HYDROCHLORIDE
     Indication: Attention deficit hyperactivity disorder
     Route: 065

REACTIONS (20)
  - Drug dependence [Unknown]
  - Seizure [Unknown]
  - Adverse event [Unknown]
  - Nightmare [Unknown]
  - Illness [Unknown]
  - Rehabilitation therapy [Unknown]
  - Malaise [Unknown]
  - Fatigue [Unknown]
  - Pain [Unknown]
  - Mental disorder [Unknown]
  - Paranoia [Unknown]
  - Feeling abnormal [Unknown]
  - Thinking abnormal [Unknown]
  - Insomnia [Unknown]
  - Depressed mood [Unknown]
  - Mental disorder [Unknown]
  - Abnormal behaviour [Unknown]
  - Therapeutic product effect decreased [Unknown]
  - Product quality issue [Unknown]
  - Off label use [Unknown]
